FAERS Safety Report 4825155-6 (Version None)
Quarter: 2005Q4

REPORT INFORMATION
  Report Type: 
  Country: None (occurrence: None)
  Receive Date: 20051109
  Receipt Date: 20051109
  Transmission Date: 20060501
  Serious: Yes (Life-Threatening, Hospitalization)
  Sender: FDA-Public Use
  Company Number: None

PATIENT
  Sex: Female
  Weight: 67 kg

DRUGS (10)
  1. WARFARIN [Suspect]
     Indication: ATRIAL FIBRILLATION
     Dosage: VARIED QD PO
     Route: 048
     Dates: start: 19990101
  2. WARFARIN [Suspect]
     Indication: HEART VALVE REPLACEMENT
     Dosage: VARIED QD PO
     Route: 048
     Dates: start: 19990101
  3. ASPIRIN [Suspect]
     Indication: CARDIAC DISORDER
     Dosage: 81 MG QD PO
     Route: 048
  4. ASPIRIN [Suspect]
     Indication: PROPHYLAXIS
     Dosage: 81 MG QD PO
     Route: 048
  5. COREG [Concomitant]
  6. COZAAR [Concomitant]
  7. FORTEO [Concomitant]
  8. GLYBURIDE [Concomitant]
  9. ZOCOR [Concomitant]
  10. PRILOSEC [Concomitant]

REACTIONS (5)
  - GASTRITIS [None]
  - HAEMATEMESIS [None]
  - MALLORY-WEISS SYNDROME [None]
  - PHARYNGEAL HAEMORRHAGE [None]
  - WOUND SECRETION [None]
